FAERS Safety Report 5514894-X (Version None)
Quarter: 2007Q4

REPORT INFORMATION
  Report Type: 
  Country: None (occurrence: None)
  Receive Date: 20071113
  Receipt Date: 20060921
  Transmission Date: 20080405
  Serious: No
  Sender: FDA-Public Use
  Company Number: A0620982A

PATIENT
  Age: 64 Year
  Sex: Female

DRUGS (5)
  1. COREG [Suspect]
     Indication: HYPERTENSION
     Dosage: 3.125MG TWICE PER DAY
     Route: 048
     Dates: start: 20060919
  2. INSULIN [Concomitant]
  3. METAGLIP [Concomitant]
  4. NORVASC [Concomitant]
  5. RESTORIL [Concomitant]

REACTIONS (7)
  - ASTHENIA [None]
  - DIZZINESS [None]
  - FATIGUE [None]
  - HEADACHE [None]
  - INSOMNIA [None]
  - NAUSEA [None]
  - VOMITING [None]
